FAERS Safety Report 4587092-4 (Version None)
Quarter: 2005Q1

REPORT INFORMATION
  Report Type: 
  Country: None (occurrence: None)
  Receive Date: 20050218
  Receipt Date: 20050214
  Transmission Date: 20050727
  Serious: Yes (Life-Threatening, Hospitalization)
  Sender: FDA-Public Use
  Company Number: PHRM2005FR00802

PATIENT
  Age: 66 Year
  Sex: Male
  Weight: 60 kg

DRUGS (5)
  1. CISPLATYL [Suspect]
     Indication: PLEURAL MESOTHELIOMA
     Dosage: 126 MG, 6 TREATMENTS
     Dates: start: 20040515, end: 20040923
  2. ALIMTA [Suspect]
     Indication: PLEURAL MESOTHELIOMA
     Dosage: 845 MG, 6 TREATMENTS
     Dates: start: 20040515, end: 20040923
  3. DETENSIEL [Suspect]
     Indication: HYPERTENSION
     Route: 048
     Dates: start: 20040515
  4. LEDERFOLIN [Suspect]
     Dosage: UNK, UNK
     Route: 048
     Dates: start: 20040515
  5. NITRIDERM TTS [Suspect]
     Indication: HYPERTENSION
     Dosage: UNK, UNK
     Route: 062
     Dates: start: 20040515

REACTIONS (8)
  - BLOOD CREATININE INCREASED [None]
  - BLOOD UREA INCREASED [None]
  - CARDIO-RESPIRATORY ARREST [None]
  - DILATATION VENTRICULAR [None]
  - DYSPNOEA [None]
  - PULMONARY OEDEMA [None]
  - VENTRICULAR DYSFUNCTION [None]
  - VENTRICULAR TACHYCARDIA [None]
